FAERS Safety Report 10658405 (Version 2)
Quarter: 2015Q2

REPORT INFORMATION
  Report Type: Spontaneous
  Country: US (occurrence: US)
  Receive Date: 20141217
  Receipt Date: 20150508
  Transmission Date: 20150821
  Serious: No
  Sender: FDA-Public Use
  Company Number: US-PFIZER INC-2014345184

PATIENT
  Age: 77 Year
  Sex: Female
  Weight: 77 kg

DRUGS (14)
  1. VITAMIN C [Concomitant]
     Active Substance: ASCORBIC ACID
     Dosage: UNK, 1X/DAY
  2. VITAMIN B [Concomitant]
     Active Substance: VITAMIN B
     Dosage: UNK, 1X/DAY
  3. PREMARIN [Suspect]
     Active Substance: ESTROGENS, CONJUGATED
     Indication: PAIN
  4. PREMARIN [Suspect]
     Active Substance: ESTROGENS, CONJUGATED
     Indication: PRURITUS
     Dosage: UNK
     Dates: start: 20141205
  5. CITALOPRAM [Concomitant]
     Active Substance: CITALOPRAM HYDROBROMIDE
     Dosage: 10 MG, 1X/DAY (AT NIGHT)
  6. FISH OIL [Concomitant]
     Active Substance: FISH OIL
     Dosage: UNK, 1X/DAY
  7. VITAMIN D [Concomitant]
     Active Substance: CHOLECALCIFEROL
     Dosage: UNK, 1X/DAY
  8. PREMARIN [Suspect]
     Active Substance: ESTROGENS, CONJUGATED
     Indication: VULVOVAGINAL PRURITUS
     Dosage: UNK
     Dates: start: 20141113, end: 20141119
  9. WARFARIN [Concomitant]
     Active Substance: WARFARIN
     Dosage: 1X/DAY (2MG ,1.5 EVERY DAY AND ON TUESDAYS, TWO 2MG)
  10. SYNTHROID [Concomitant]
     Active Substance: LEVOTHYROXINE SODIUM
     Dosage: 50 ?G, 1X/DAY
  11. PANTOPRAZOLE [Concomitant]
     Active Substance: PANTOPRAZOLE SODIUM
     Dosage: 40 MG, 2X/DAY
  12. LISINOPRIL. [Concomitant]
     Active Substance: LISINOPRIL
     Dosage: 20 MG, 1X/DAY(AT BEDTIME)
  13. ALPRAZOLAM. [Concomitant]
     Active Substance: ALPRAZOLAM
     Dosage: UNK , 1X/DAY  (1MG,1 OR 2 PILLS AT NIGHT)
  14. MAGNESIUM [Concomitant]
     Active Substance: MAGNESIUM
     Dosage: UNK, 1X/DAY

REACTIONS (5)
  - Breast disorder [Recovered/Resolved]
  - Erythema [Recovered/Resolved]
  - Nausea [Recovered/Resolved]
  - Nipple pain [Recovered/Resolved]
  - Vulvovaginal pain [Recovered/Resolved]

NARRATIVE: CASE EVENT DATE: 201412
